FAERS Safety Report 9496242 (Version 1)
Quarter: 2013Q3

REPORT INFORMATION
  Report Type: Spontaneous
  Country: GB (occurrence: None)
  Receive Date: 20130829
  Receipt Date: 20130829
  Transmission Date: 20140515
  Serious: Yes (Hospitalization)
  Sender: FDA-Public Use
  Company Number: AUR-APL-2013-07005

PATIENT
  Age: 95 Year
  Sex: Female

DRUGS (7)
  1. PERINDOPRIL [Suspect]
     Indication: PRODUCT USED FOR UNKNOWN INDICATION
     Dosage: 1 IN 1 D
     Route: 048
     Dates: start: 20110826
  2. TRIMETHOPRIM [Suspect]
     Indication: URINARY TRACT INFECTION
     Route: 048
     Dates: start: 20130726, end: 20130729
  3. ADALAT (NIFEDIPINE) [Concomitant]
  4. LEVOTHYROXINE SODIUM (LEVOTHYROXINE SODIUM) [Concomitant]
  5. NITRAZEPAM (NITRAZEPAM) [Concomitant]
  6. PARACETAMOL (PARACETAMOL) [Concomitant]
  7. SENNA (SENNA ALEXANDRINA) [Concomitant]

REACTIONS (2)
  - Drug interaction [None]
  - Hyponatraemia [None]
